FAERS Safety Report 12880345 (Version 3)
Quarter: 2017Q1

REPORT INFORMATION
  Report Type: Spontaneous
  Country: US (occurrence: US)
  Receive Date: 20161025
  Receipt Date: 20170227
  Transmission Date: 20170428
  Serious: Yes (Hospitalization)
  Sender: FDA-Public Use
  Company Number: US-PFIZER INC-2016495487

PATIENT
  Age: 59 Year
  Sex: Female

DRUGS (9)
  1. EXEMESTANE. [Suspect]
     Active Substance: EXEMESTANE
     Indication: BREAST CANCER STAGE IV
     Dosage: UNK
     Dates: start: 20160618, end: 20160718
  2. EXEMESTANE. [Suspect]
     Active Substance: EXEMESTANE
     Dosage: 25 MG, CYCLIC
  3. FLUOCINONIDE. [Concomitant]
     Active Substance: FLUOCINONIDE
     Dosage: 0.05 %, UNK
  4. IBUPROFEN. [Concomitant]
     Active Substance: IBUPROFEN
     Dosage: 800 MG, UNK
  5. EXEMESTANE. [Suspect]
     Active Substance: EXEMESTANE
     Dosage: UNK
     Dates: start: 20160730, end: 20160827
  6. AFINITOR [Suspect]
     Active Substance: EVEROLIMUS
     Dosage: 7.5 MG, CYCLIC
     Dates: start: 20160730, end: 20160827
  7. AFINITOR [Suspect]
     Active Substance: EVEROLIMUS
     Indication: BREAST CANCER STAGE IV
     Dosage: 7.5 MG, UNK
     Dates: start: 20160618, end: 20160718
  8. PROCHLORPER [Concomitant]
     Dosage: 10 MG, UNK
  9. NYSTATIN. [Concomitant]
     Active Substance: NYSTATIN
     Dosage: 100000 IU, UNK

REACTIONS (4)
  - Oral fungal infection [Recovered/Resolved]
  - Stomatitis [Recovered/Resolved]
  - Abdominal discomfort [Recovered/Resolved]
  - Nausea [Recovered/Resolved]

NARRATIVE: CASE EVENT DATE: 2016
